FAERS Safety Report 5435425-9 (Version None)
Quarter: 2007Q3

REPORT INFORMATION
  Report Type: 
  Country: None (occurrence: None)
  Receive Date: 20070831
  Receipt Date: 20070820
  Transmission Date: 20080115
  Serious: No
  Sender: FDA-Public Use
  Company Number: A0670935A

PATIENT

DRUGS (2)
  1. ALLI [Suspect]
     Dates: start: 20070619
  2. NEXIUM [Concomitant]

REACTIONS (2)
  - CONSTIPATION [None]
  - VOMITING [None]
